FAERS Safety Report 22200180 (Version 1)
Quarter: 2023Q2

REPORT INFORMATION
  Report Type: Spontaneous
  Country: VN (occurrence: VN)
  Receive Date: 20230412
  Receipt Date: 20230412
  Transmission Date: 20230721
  Serious: Yes (Other)
  Sender: FDA-Public Use
  Company Number: VN-JNJFOC-20230409201

PATIENT
  Sex: Male

DRUGS (2)
  1. ZYTIGA [Suspect]
     Active Substance: ABIRATERONE ACETATE
     Indication: Hormone-dependent prostate cancer
     Route: 048
  2. CAPIVASERTIB [Suspect]
     Active Substance: CAPIVASERTIB
     Indication: Hormone-dependent prostate cancer
     Route: 065

REACTIONS (2)
  - Hepatitis B reactivation [Unknown]
  - Hepatic enzyme increased [Unknown]
